FAERS Safety Report 8974367 (Version 1)
Quarter: 2012Q4

REPORT INFORMATION
  Report Type: Spontaneous
  Country: US (occurrence: None)
  Receive Date: 20121211
  Receipt Date: 20121211
  Transmission Date: 20130627
  Serious: Yes (Other)
  Sender: FDA-Public Use
  Company Number: 1473723

PATIENT
  Age: 75 Year
  Sex: Male

DRUGS (3)
  1. LIDOCAINE HYDROCHLORIDE [Suspect]
     Indication: KNEE PAIN
     Dates: start: 20120826, end: 20120830
  2. LIDOCAINE HYDROCHLORIDE [Suspect]
     Indication: DEGENERATIVE JOINT DISEASE
     Dates: start: 20120826, end: 20120830
  3. DEPOMEDROL [Concomitant]

REACTIONS (5)
  - Arthritis infective [None]
  - Joint injury [None]
  - Iatrogenic injury [None]
  - Bone fragmentation [None]
  - Fracture displacement [None]
